FAERS Safety Report 8789829 (Version 2)
Quarter: 2012Q4

REPORT INFORMATION
  Report Type: 
  Country: US (occurrence: US)
  Receive Date: 20120917
  Receipt Date: 20120926
  Transmission Date: 20130627
  Serious: Yes (Hospitalization, Other)
  Sender: FDA-Public Use
  Company Number: US-009507513-1102USA01360

PATIENT

DRUGS (2)
  1. FOSAMAX [Suspect]
     Indication: OSTEOPOROSIS
     Dosage: 70 mg, QW
     Route: 048
     Dates: start: 2003, end: 201007
  2. METICORTEN [Concomitant]
     Dates: start: 2001

REACTIONS (59)
  - Osteomyelitis chronic [Recovering/Resolving]
  - Convulsion [Unknown]
  - Spinal operation [Unknown]
  - Knee arthroplasty [Unknown]
  - Oxygen saturation decreased [Unknown]
  - Tonsillectomy [Unknown]
  - Skin cancer [Unknown]
  - Biopsy breast [Unknown]
  - Biopsy lung [Unknown]
  - Sinus operation [Unknown]
  - Osteonecrosis of jaw [Unknown]
  - Essential hypertension [Not Recovered/Not Resolved]
  - Hypercholesterolaemia [Unknown]
  - Tooth disorder [Unknown]
  - Thyroid disorder [Unknown]
  - Arthritis [Unknown]
  - Tooth infection [Recovering/Resolving]
  - Bone loss [Unknown]
  - Pneumonia [Unknown]
  - Nerve compression [Unknown]
  - Sinusitis [Unknown]
  - Pseudomonas infection [Unknown]
  - Glucocorticoids abnormal [Unknown]
  - Hypothyroidism [Not Recovered/Not Resolved]
  - Hiatus hernia [Unknown]
  - Syncope [Unknown]
  - Lumbar spinal stenosis [Unknown]
  - Spinal osteoarthritis [Unknown]
  - Dysphonia [Not Recovered/Not Resolved]
  - Dry eye [Unknown]
  - Pulmonary fibrosis [Not Recovered/Not Resolved]
  - Histoplasmosis [Unknown]
  - Pneumocystis jiroveci pneumonia [Unknown]
  - Osteoarthritis [Unknown]
  - Lipid metabolism disorder [Unknown]
  - Exostosis [Unknown]
  - Cervicobrachial syndrome [Unknown]
  - Hypoaesthesia [Unknown]
  - Paraesthesia [Unknown]
  - Intervertebral disc degeneration [Unknown]
  - Exostosis [Unknown]
  - Joint dislocation [Unknown]
  - Cervicobrachial syndrome [Unknown]
  - Weight decreased [Unknown]
  - Hyperuricaemia [Unknown]
  - Irritable bowel syndrome [Unknown]
  - Urinary tract infection [Unknown]
  - Osteopenia [Unknown]
  - Faecal incontinence [Unknown]
  - Tooth disorder [Unknown]
  - Stomatitis [Unknown]
  - Diarrhoea [Unknown]
  - Gastritis [Unknown]
  - Alopecia [Not Recovered/Not Resolved]
  - Gastrooesophageal reflux disease [Not Recovered/Not Resolved]
  - Rash generalised [Unknown]
  - Gastric ulcer [Unknown]
  - Constipation [Not Recovered/Not Resolved]
  - Drug ineffective [Unknown]
